FAERS Safety Report 4347187-7 (Version None)
Quarter: 2004Q1

REPORT INFORMATION
  Report Type: 
  Country: None (occurrence: None)
  Receive Date: 20040325
  Receipt Date: 20040130
  Transmission Date: 20041129
  Serious: No
  Sender: FDA-Public Use
  Company Number: USA040258168

PATIENT
  Age: 55 Year
  Sex: Female

DRUGS (3)
  1. FORTEO [Suspect]
     Indication: OSTEOPOROSIS
     Dates: start: 20030611
  2. ACTIVELLE [Concomitant]
  3. LIPITOR [Concomitant]

REACTIONS (3)
  - CHILLS [None]
  - LYMPHADENOPATHY [None]
  - PYREXIA [None]
